FAERS Safety Report 6305888-5 (Version None)
Quarter: 2009Q3

REPORT INFORMATION
  Report Type: 
  Country: None (occurrence: None)
  Receive Date: 20090812
  Receipt Date: 20090804
  Transmission Date: 20100115
  Serious: Yes (Other)
  Sender: FDA-Public Use
  Company Number: US-BAYER-200923575NA

PATIENT
  Age: 41 Year
  Sex: Female
  Weight: 113 kg

DRUGS (6)
  1. AVELOX [Suspect]
     Indication: SINUSITIS
  2. METFORMIN [Concomitant]
  3. AMARYL [Concomitant]
  4. ACTOS [Concomitant]
  5. LASIX [Concomitant]
  6. SINGULAIR [Concomitant]

REACTIONS (9)
  - BACK PAIN [None]
  - CLOSTRIDIAL INFECTION [None]
  - DECREASED APPETITE [None]
  - DIARRHOEA [None]
  - DYSSTASIA [None]
  - HEADACHE [None]
  - MYALGIA [None]
  - PAIN IN EXTREMITY [None]
  - THIRST [None]
